FAERS Safety Report 8184740-7 (Version None)
Quarter: 2012Q1

REPORT INFORMATION
  Report Type: 
  Country: None (occurrence: None)
  Receive Date: 20120305
  Receipt Date: 20120305
  Transmission Date: 20120608
  Serious: Yes (Hospitalization, Disabling)
  Sender: FDA-Public Use
  Company Number: None

PATIENT
  Age: 81 Year
  Sex: Female
  Weight: 84.368 kg

DRUGS (1)
  1. METOPROLOL SUCCINATE [Suspect]
     Indication: HYPERTENSION
     Dates: start: 20110928, end: 20111024

REACTIONS (4)
  - RESPIRATORY DISTRESS [None]
  - BRADYCARDIA [None]
  - ATRIOVENTRICULAR BLOCK [None]
  - HYPOTENSION [None]
